FAERS Safety Report 6061173-0 (Version None)
Quarter: 2009Q1

REPORT INFORMATION
  Report Type: 
  Country: None (occurrence: None)
  Receive Date: 20090202
  Receipt Date: 20090114
  Transmission Date: 20090719
  Serious: Yes (Other)
  Sender: FDA-Public Use
  Company Number: KR-ASTRAZENECA-2009AP00858

PATIENT
  Age: 41 Year
  Sex: Male

DRUGS (2)
  1. MEPIVACAINE HCL [Suspect]
     Route: 042
  2. LIDOCAINE [Suspect]
     Route: 042

REACTIONS (2)
  - CARDIAC ARREST [None]
  - VENTRICULAR FIBRILLATION [None]
